FAERS Safety Report 15885046 (Version 2)
Quarter: 2019Q1

REPORT INFORMATION
  Report Type: Spontaneous
  Country: CH (occurrence: CH)
  Receive Date: 20190129
  Receipt Date: 20190308
  Transmission Date: 20190417
  Serious: Yes (Hospitalization)
  Sender: FDA-Public Use
  Company Number: CH-NOVOPROD-643563

PATIENT
  Age: 57 Year
  Sex: Female
  Weight: 178 kg

DRUGS (5)
  1. TORASEMID [Concomitant]
     Active Substance: TORSEMIDE
     Dosage: 10 MG, BID
     Route: 048
  2. SAXENDA [Suspect]
     Active Substance: LIRAGLUTIDE
     Indication: OBESITY
     Dosage: UNK
     Route: 058
  3. SAXENDA [Suspect]
     Active Substance: LIRAGLUTIDE
     Dosage: 3 MG
     Route: 058
     Dates: end: 20190109
  4. SAXENDA [Suspect]
     Active Substance: LIRAGLUTIDE
     Dosage: 2.4 MG
     Route: 058
  5. FLUOXETINE [Concomitant]
     Active Substance: FLUOXETINE HYDROCHLORIDE
     Dosage: 20 MG, BID
     Route: 048

REACTIONS (1)
  - Hypoglycaemia [Recovered/Resolved]

NARRATIVE: CASE EVENT DATE: 20190109
